FAERS Safety Report 20682846 (Version 2)
Quarter: 2022Q2

REPORT INFORMATION
  Report Type: Spontaneous
  Country: US (occurrence: US)
  Receive Date: 20220407
  Receipt Date: 20220607
  Transmission Date: 20220721
  Serious: Yes (Other)
  Sender: FDA-Public Use
  Company Number: US-BEH-2022143593

PATIENT
  Age: 27 Year
  Sex: Female

DRUGS (2)
  1. HAEGARDA [Suspect]
     Active Substance: HUMAN C1-ESTERASE INHIBITOR
     Indication: Hereditary angioedema
     Dosage: 6000 INTERNATIONAL UNIT, BIW
     Route: 058
     Dates: start: 20210408
  2. HAEGARDA [Suspect]
     Active Substance: HUMAN C1-ESTERASE INHIBITOR
     Indication: Prophylaxis

REACTIONS (6)
  - Hereditary angioedema [Not Recovered/Not Resolved]
  - Drug ineffective for unapproved indication [Not Recovered/Not Resolved]
  - Off label use [Not Recovered/Not Resolved]
  - Hereditary angioedema [Not Recovered/Not Resolved]
  - Hereditary angioedema [Not Recovered/Not Resolved]
  - Pain in extremity [Not Recovered/Not Resolved]

NARRATIVE: CASE EVENT DATE: 20220301
